FAERS Safety Report 24343159 (Version 1)
Quarter: 2024Q3

REPORT INFORMATION
  Report Type: Report from Study
  Country: BR (occurrence: BR)
  Receive Date: 20240920
  Receipt Date: 20240920
  Transmission Date: 20241016
  Serious: Yes (Other)
  Sender: NOVARTIS
  Company Number: BR-002147023-NVSC2024BR184286

PATIENT
  Sex: Male

DRUGS (4)
  1. COSENTYX [Suspect]
     Active Substance: SECUKINUMAB
     Indication: Ankylosing spondylitis
     Dosage: UNK
     Route: 065
  2. COSENTYX [Suspect]
     Active Substance: SECUKINUMAB
     Dosage: UNK, (LAST APPLICATION ON 09 SEP)
     Route: 065
  3. COSENTYX [Suspect]
     Active Substance: SECUKINUMAB
     Dosage: 150 MG, QMO (1 PEN)
     Route: 065
  4. COSENTYX [Suspect]
     Active Substance: SECUKINUMAB
     Dosage: 150 M (2 PENS)
     Route: 065

REACTIONS (13)
  - Myelodysplastic syndrome [Recovering/Resolving]
  - Anaemia [Recovering/Resolving]
  - Neck pain [Recovered/Resolved]
  - Musculoskeletal stiffness [Recovering/Resolving]
  - Haemoglobin decreased [Recovering/Resolving]
  - Red blood cell count decreased [Recovering/Resolving]
  - Inappropriate schedule of product administration [Unknown]
  - H1N1 influenza [Recovering/Resolving]
  - Catarrh [Recovering/Resolving]
  - Cough [Recovering/Resolving]
  - Haemoglobin abnormal [Unknown]
  - Red blood cell count abnormal [Unknown]
  - Drug ineffective [Recovered/Resolved]

NARRATIVE: CASE EVENT DATE: 20230101
